FAERS Safety Report 15693438 (Version 1)
Quarter: 2018Q4

REPORT INFORMATION
  Report Type: Spontaneous
  Country: IT (occurrence: IT)
  Receive Date: 20181206
  Receipt Date: 20181206
  Transmission Date: 20190205
  Serious: Yes (Hospitalization)
  Sender: FDA-Public Use
  Company Number: IT-ROCHE-2225580

PATIENT
  Age: 56 Year
  Sex: Female

DRUGS (6)
  1. ALCOVER [Suspect]
     Active Substance: SODIUM OXYBATE
     Indication: ALCOHOLISM
     Route: 048
  2. GABAPENTIN. [Concomitant]
     Active Substance: GABAPENTIN
     Route: 048
  3. LYRICA [Concomitant]
     Active Substance: PREGABALIN
     Route: 048
  4. BRINTELLIX [Concomitant]
     Active Substance: VORTIOXETINE HYDROBROMIDE
     Route: 048
  5. DAPAROX [Concomitant]
     Active Substance: PAROXETINE HYDROCHLORIDE
     Route: 048
  6. RIVOTRIL [Suspect]
     Active Substance: CLONAZEPAM
     Indication: ALCOHOLISM
     Route: 048

REACTIONS (8)
  - Syncope [Recovering/Resolving]
  - Toxicity to various agents [Recovering/Resolving]
  - Overdose [Unknown]
  - Sopor [Recovering/Resolving]
  - Somnolence [Recovering/Resolving]
  - Trismus [Recovering/Resolving]
  - Contusion [Recovering/Resolving]
  - Dyskinesia [Recovering/Resolving]

NARRATIVE: CASE EVENT DATE: 20180816
